FAERS Safety Report 12573514 (Version 1)
Quarter: 2016Q3

REPORT INFORMATION
  Report Type: Spontaneous
  Country: US (occurrence: None)
  Receive Date: 20160719
  Receipt Date: 20160719
  Transmission Date: 20161109
  Serious: Yes (Life-Threatening, Hospitalization, Other)
  Sender: FDA-Public Use
  Company Number: None

PATIENT
  Age: 24 Year
  Sex: Female
  Weight: 52.16 kg

DRUGS (7)
  1. NEXPLANON [Suspect]
     Active Substance: ETONOGESTREL
     Indication: CONTRACEPTION
     Dosage: SUPPOSE TO KEEP IN FOR 3 YEARS INJECTION IN RIGHT ARM
     Dates: start: 20140618, end: 20160614
  2. BENADRYL [Concomitant]
     Active Substance: DIPHENHYDRAMINE HYDROCHLORIDE
  3. ALEVE [Concomitant]
     Active Substance: NAPROXEN SODIUM
  4. ADVIL [Concomitant]
     Active Substance: IBUPROFEN
  5. IBPROFEN [Concomitant]
  6. VITAMIN [Concomitant]
     Active Substance: VITAMINS
  7. ST. JOHNS WORT [Concomitant]
     Active Substance: HYPERICUM PERFORATUM

REACTIONS (10)
  - Acne [None]
  - Dizziness [None]
  - Anxiety [None]
  - Depression [None]
  - Weight decreased [None]
  - Eating disorder [None]
  - Pain [None]
  - Feeling abnormal [None]
  - Dyspnoea [None]
  - Insomnia [None]

NARRATIVE: CASE EVENT DATE: 20160325
